FAERS Safety Report 4828398-0 (Version None)
Quarter: 2005Q4

REPORT INFORMATION
  Report Type: 
  Country: None (occurrence: None)
  Receive Date: 20051115
  Receipt Date: 20050930
  Transmission Date: 20060501
  Serious: Yes (Disabling, Other)
  Sender: FDA-Public Use
  Company Number: US-MERCK-0510USA01920

PATIENT
  Age: 59 Year
  Sex: Female
  Weight: 91 kg

DRUGS (8)
  1. VIOXX [Suspect]
     Indication: BACK INJURY
     Route: 048
     Dates: start: 20000313, end: 20020218
  2. DARVOCET-N 100 [Concomitant]
     Route: 065
  3. LASIX [Concomitant]
     Route: 065
  4. OS-CAL [Concomitant]
     Route: 065
  5. PREVACID [Concomitant]
     Route: 065
  6. SYNTHROID [Concomitant]
     Route: 065
  7. XANAX [Concomitant]
     Route: 065
  8. VOLTAREN [Concomitant]
     Route: 065

REACTIONS (2)
  - BACK DISORDER [None]
  - MYOCARDIAL INFARCTION [None]
